APPROVED DRUG PRODUCT: METFORMIN HYDROCHLORIDE
Active Ingredient: METFORMIN HYDROCHLORIDE
Strength: 1GM
Dosage Form/Route: TABLET, EXTENDED RELEASE;ORAL
Application: A202917 | Product #002
Applicant: SUN PHARMACEUTICAL INDUSTRIES LTD
Approved: Aug 1, 2016 | RLD: No | RS: No | Type: DISCN